FAERS Safety Report 4778177-8 (Version None)
Quarter: 2005Q3

REPORT INFORMATION
  Report Type: 
  Country: None (occurrence: None)
  Receive Date: 20050923
  Receipt Date: 20050923
  Transmission Date: 20060218
  Serious: Yes (Other)
  Sender: FDA-Public Use
  Company Number: None

PATIENT
  Age: 60 Year
  Sex: Male
  Weight: 104.3 kg

DRUGS (8)
  1. GEMFIBROZIL [Suspect]
  2. METOPROLOL SUCCINATE [Concomitant]
  3. COLESTIPOL HCL [Concomitant]
  4. ISOSORBIDE MONONITRATE [Concomitant]
  5. METOPROLOL SUCCINATE [Concomitant]
  6. NITROGLYCERIN [Concomitant]
  7. SYNTHROID [Concomitant]
  8. LORATADINE [Concomitant]

REACTIONS (1)
  - DIZZINESS [None]
